FAERS Safety Report 4888562-1 (Version None)
Quarter: 2005Q4

REPORT INFORMATION
  Report Type: 
  Country: None (occurrence: None)
  Receive Date: 20051215
  Receipt Date: 20050422
  Transmission Date: 20060501
  Serious: Yes (Other)
  Sender: FDA-Public Use
  Company Number: 2005065000

PATIENT
  Age: 48 Year
  Sex: Male
  Weight: 79.3795 kg

DRUGS (15)
  1. BEXTRA [Suspect]
     Indication: ARTHRITIS
     Dosage: 10 MG (10 MG, 1 IN 1 D), ORAL
     Route: 048
     Dates: start: 20040101, end: 20041012
  2. BEXTRA [Suspect]
     Indication: BACK PAIN
     Dosage: 10 MG (10 MG, 1 IN 1 D), ORAL
     Route: 048
     Dates: start: 20040101, end: 20041012
  3. CELEBREX [Suspect]
     Indication: ARTHRITIS
     Dosage: 200 MG (200 MG, 1 IN 1 D), ORAL
     Route: 048
     Dates: start: 20020101, end: 20030101
  4. CELEBREX [Suspect]
     Indication: BACK PAIN
     Dosage: 200 MG (200 MG, 1 IN 1 D), ORAL
     Route: 048
     Dates: start: 20020101, end: 20030101
  5. NORTRIPTYLINE (NORTRIPTYLINE) [Concomitant]
  6. LOSARTAN POTASSIUM [Concomitant]
  7. ATENOLOL [Concomitant]
  8. OXYCODONE (OXYCODONE) [Concomitant]
  9. CYCLOBENZAPRINE HYDROCHLORIDE (CYCLOBENZAPRINE HYDROCHOLORIDE) [Concomitant]
  10. TIAGABINE HYDROCHLORIDE (TIAGABINE HYDROCHLORIDE) [Concomitant]
  11. ACETAMINOPHEN [Concomitant]
  12. OMEPRAZOLE [Concomitant]
  13. PANTOPRAZOLE SODIUM [Concomitant]
  14. RABEPRAZOLE SODIUM [Concomitant]
  15. ESOMEPRAZOLE (ESOMEPRAZOLE) [Concomitant]

REACTIONS (12)
  - BLOOD PRESSURE INCREASED [None]
  - DIARRHOEA [None]
  - DYSPNOEA [None]
  - GASTROOESOPHAGEAL REFLUX DISEASE [None]
  - HAEMATOCHEZIA [None]
  - HEART RATE INCREASED [None]
  - INFLUENZA LIKE ILLNESS [None]
  - NECK PAIN [None]
  - PETECHIAE [None]
  - PYREXIA [None]
  - STOMACH DISCOMFORT [None]
  - STOMATITIS [None]
